FAERS Safety Report 5849067-4 (Version None)
Quarter: 2008Q3

REPORT INFORMATION
  Report Type: 
  Country: None (occurrence: None)
  Receive Date: 20080819
  Receipt Date: 20080811
  Transmission Date: 20090109
  Serious: Yes (Other)
  Sender: FDA-Public Use
  Company Number: PHHY2008BR17793

PATIENT
  Age: 80 Year
  Sex: Female

DRUGS (1)
  1. TRILEPTAL [Suspect]
     Dosage: 300 MG
     Route: 048

REACTIONS (4)
  - HEADACHE [None]
  - NAUSEA [None]
  - PAIN [None]
  - SYNCOPE [None]
